FAERS Safety Report 8452505-4 (Version None)
Quarter: 2012Q2

REPORT INFORMATION
  Report Type: 
  Country: None (occurrence: None)
  Receive Date: 20120620
  Receipt Date: 20120413
  Transmission Date: 20120825
  Serious: No
  Sender: FDA-Public Use
  Company Number: US-VERTEX PHARMACEUTICALS INC.-AE-2012-005334

PATIENT
  Sex: Female

DRUGS (15)
  1. PEGASYS [Concomitant]
     Indication: HEPATITIS C
     Route: 058
     Dates: start: 20110916, end: 20120216
  2. RIBAVIRIN [Concomitant]
     Indication: HEPATITIS C
     Dates: start: 20110916, end: 20120301
  3. IRON [Concomitant]
     Route: 048
  4. LEVOTHYROXINE SODIUM [Concomitant]
     Dates: start: 20110914
  5. LEVOTHYROXINE SODIUM [Concomitant]
     Dates: start: 20111107
  6. INCIVEK [Suspect]
     Indication: HEPATITIS C
     Route: 048
     Dates: start: 20110916, end: 20111209
  7. CLOBETASOL 0.55 OINTMENT [Concomitant]
  8. LEVOTHYROXINE SODIUM [Concomitant]
     Dates: start: 20120203
  9. LEVOTHYROXINE SODIUM [Concomitant]
     Indication: HYPOTHYROIDISM
     Dates: start: 20110317
  10. LEVOTHYROXINE SODIUM [Concomitant]
     Dates: start: 20111202
  11. LEVOTHYROXINE SODIUM [Concomitant]
     Dates: start: 20120104
  12. LEVOTHYROXINE SODIUM [Concomitant]
     Dates: start: 20110901
  13. IMITREX [Concomitant]
     Indication: HEADACHE
     Route: 048
  14. LEVOTHYROXINE SODIUM [Concomitant]
     Dates: start: 20111019
  15. LEVOTHYROXINE SODIUM [Concomitant]
     Dates: start: 20120323

REACTIONS (2)
  - SINUSITIS [None]
  - BLOOD THYROID STIMULATING HORMONE INCREASED [None]
